FAERS Safety Report 10375619 (Version 2)
Quarter: 2014Q3

REPORT INFORMATION
  Report Type: Spontaneous
  Country: US (occurrence: US)
  Receive Date: 20140811
  Receipt Date: 20140912
  Transmission Date: 20150326
  Serious: Yes (Other)
  Sender: FDA-Public Use
  Company Number: US-PFIZER INC-2014220410

PATIENT
  Age: 45 Year
  Sex: Female
  Weight: 51.25 kg

DRUGS (2)
  1. LYRICA [Suspect]
     Active Substance: PREGABALIN
     Dosage: 50 MG, 1X/DAY
     Dates: start: 201408, end: 20140905
  2. LYRICA [Suspect]
     Active Substance: PREGABALIN
     Indication: FIBROMYALGIA
     Dosage: 75 MG, 1X/DAY
     Dates: start: 2011, end: 201408

REACTIONS (4)
  - Feeling abnormal [Unknown]
  - Nausea [Unknown]
  - Drug withdrawal syndrome [Unknown]
  - Foot deformity [Unknown]

NARRATIVE: CASE EVENT DATE: 20140814
